FAERS Safety Report 20801259 (Version 1)
Quarter: 2022Q2

REPORT INFORMATION
  Report Type: Other
  Country: GB (occurrence: GB)
  Receive Date: 20220509
  Receipt Date: 20220509
  Transmission Date: 20220721
  Serious: No
  Sender: FDA-Public Use
  Company Number: GB-MHRA-MED-202204212100032460-ZAMPA

PATIENT
  Age: 66 Year
  Sex: Male
  Weight: 68 kg

DRUGS (1)
  1. SERTRALINE [Suspect]
     Active Substance: SERTRALINE HYDROCHLORIDE
     Indication: Product used for unknown indication
     Dosage: 50 MILLIGRAM, QD
     Route: 065

REACTIONS (2)
  - Dizziness [Recovered/Resolved]
  - Libido decreased [Recovered/Resolved]

NARRATIVE: CASE EVENT DATE: 20220330
